FAERS Safety Report 20314842 (Version 1)
Quarter: 2022Q1

REPORT INFORMATION
  Report Type: Spontaneous
  Country: US (occurrence: None)
  Receive Date: 20220110
  Receipt Date: 20220110
  Transmission Date: 20220423
  Serious: No
  Sender: FDA-Public Use
  Company Number: US-ROCHE-2894576

PATIENT
  Sex: Female

DRUGS (2)
  1. RITUXAN [Suspect]
     Active Substance: RITUXIMAB
     Indication: Thrombocytopenia
     Dosage: 10ML/VL, (STRENGTH: 10MG/ML)?50ML/VL, (STRENGTH: 10MG/ML)? ONCE EVERY 7 DAYS FOR 4 DOSES
     Route: 041
     Dates: start: 202102
  2. GAMUNEX [Concomitant]
     Active Substance: HUMAN IMMUNOGLOBULIN G

REACTIONS (2)
  - Off label use [Unknown]
  - No adverse event [Unknown]
